FAERS Safety Report 18697603 (Version 1)
Quarter: 2021Q1

REPORT INFORMATION
  Report Type: Spontaneous
  Country: US (occurrence: US)
  Receive Date: 20210104
  Receipt Date: 20210104
  Transmission Date: 20210419
  Serious: Yes (Hospitalization)
  Sender: FDA-Public Use
  Company Number: US-MYLANLABS-2020M1106461

PATIENT
  Age: 61 Year
  Sex: Female

DRUGS (1)
  1. TACROLIMUS. [Suspect]
     Active Substance: TACROLIMUS
     Indication: IMMUNOSUPPRESSANT DRUG THERAPY
     Route: 065

REACTIONS (6)
  - Colitis [Recovering/Resolving]
  - Histoplasmosis [Recovering/Resolving]
  - Anaemia [Recovering/Resolving]
  - Large intestinal ulcer [Recovering/Resolving]
  - Rectal ulcer [Recovering/Resolving]
  - Ileal ulcer [Recovering/Resolving]
